FAERS Safety Report 10722671 (Version 1)
Quarter: 2015Q1

REPORT INFORMATION
  Report Type: Spontaneous
  Country: US (occurrence: US)
  Receive Date: 20150120
  Receipt Date: 20150120
  Transmission Date: 20150721
  Serious: Yes (Other)
  Sender: FDA-Public Use
  Company Number: US-GLAXOSMITHKLINE-US2015GSK005539

PATIENT

DRUGS (1)
  1. COREG [Suspect]
     Active Substance: CARVEDILOL
     Indication: PRODUCT USED FOR UNKNOWN INDICATION
     Dosage: UNK

REACTIONS (6)
  - Loss of consciousness [Unknown]
  - Internal haemorrhage [Unknown]
  - Intensive care [Unknown]
  - Nervous system disorder [Unknown]
  - Continuous positive airway pressure [Unknown]
  - Amnesia [Unknown]

NARRATIVE: CASE EVENT DATE: 201406
